FAERS Safety Report 7427571-5 (Version None)
Quarter: 2011Q2

REPORT INFORMATION
  Report Type: 
  Country: None (occurrence: None)
  Receive Date: 20110420
  Receipt Date: 20110414
  Transmission Date: 20111010
  Serious: Yes (Hospitalization, Other)
  Sender: FDA-Public Use
  Company Number: US-RB-023017-11

PATIENT
  Sex: Female

DRUGS (5)
  1. SUBUTEX [Suspect]
     Indication: DRUG DEPENDENCE
     Route: 064
     Dates: start: 20090519, end: 20090727
  2. SUBUTEX [Suspect]
     Route: 064
     Dates: start: 20090728, end: 20090914
  3. SUBUTEX [Suspect]
     Route: 064
     Dates: start: 20091208, end: 20091201
  4. SUBUTEX [Suspect]
     Route: 064
     Dates: start: 20090915, end: 20091207
  5. SUBOXONE [Suspect]
     Indication: DRUG DEPENDENCE
     Dosage: UNKNOWN DOSING DETAILS
     Route: 064
     Dates: start: 20090301, end: 20090518

REACTIONS (2)
  - DRUG EXPOSURE DURING PREGNANCY [None]
  - HOSPITALISATION [None]
